FAERS Safety Report 18276666 (Version 1)
Quarter: 2020Q3

REPORT INFORMATION
  Report Type: Spontaneous
  Country: US (occurrence: US)
  Receive Date: 20200904
  Receipt Date: 20200904
  Transmission Date: 20201103
  Serious: No
  Sender: FDA-Public Use
  Company Number: None

PATIENT
  Age: 5 Decade
  Sex: Male

DRUGS (3)
  1. INTERFERON ALFA?1B [Suspect]
     Active Substance: INTERFERON ALFA-1B
     Indication: COVID-19
     Dates: start: 2020
  2. LOPINAVIR?RITONAVIR [Suspect]
     Active Substance: LOPINAVIR\RITONAVIR
  3. RIBAVIRIN. [Suspect]
     Active Substance: RIBAVIRIN

REACTIONS (3)
  - Product use issue [None]
  - Bilevel positive airway pressure [None]
  - Product use in unapproved indication [None]
